FAERS Safety Report 4291955-7 (Version None)
Quarter: 2004Q1

REPORT INFORMATION
  Report Type: 
  Country: None (occurrence: None)
  Receive Date: 20040126
  Receipt Date: 20030917
  Transmission Date: 20041129
  Serious: No
  Sender: FDA-Public Use
  Company Number: USA030947564

PATIENT
  Age: 51 Year
  Sex: Female
  Weight: 52 kg

DRUGS (8)
  1. FORTEO [Suspect]
     Dates: start: 20030909, end: 20030915
  2. ASPIRIN [Concomitant]
  3. FLINTSTONES MULTIPLE VITAMINS [Concomitant]
  4. CITRACAL (CALCIUM CITRATE) [Concomitant]
  5. COLACE (DOCUSATE SODIUM) [Concomitant]
  6. VIVELLE-DOT [Concomitant]
  7. NEXIUM [Concomitant]
  8. CELEBREX [Concomitant]

REACTIONS (2)
  - MOBILITY DECREASED [None]
  - NAUSEA [None]
